FAERS Safety Report 5391653-2 (Version None)
Quarter: 2007Q3

REPORT INFORMATION
  Report Type: 
  Country: None (occurrence: None)
  Receive Date: 20070719
  Receipt Date: 20070706
  Transmission Date: 20080115
  Serious: Yes (Hospitalization, Other)
  Sender: FDA-Public Use
  Company Number: US-SHR-US-2007-025150

PATIENT
  Age: 59 Year
  Sex: Female

DRUGS (1)
  1. BETASERON [Suspect]
     Dosage: 8 MIU, EVERY 2D
     Route: 058
     Dates: start: 19970904

REACTIONS (5)
  - COLON CANCER [None]
  - HYPOTHYROIDISM [None]
  - LYMPHADENOPATHY [None]
  - PANCREATIC NEOPLASM [None]
  - THYROID NEOPLASM [None]
